FAERS Safety Report 24187427 (Version 3)
Quarter: 2024Q3

REPORT INFORMATION
  Report Type: Spontaneous
  Country: US (occurrence: US)
  Receive Date: 20240808
  Receipt Date: 20240918
  Transmission Date: 20241017
  Serious: No
  Sender: NOVARTIS
  Company Number: US-002147023-NVSC2024US160744

PATIENT

DRUGS (1)
  1. ENTRESTO [Suspect]
     Active Substance: SACUBITRIL\VALSARTAN
     Indication: Product used for unknown indication
     Dosage: UNK
     Route: 065

REACTIONS (15)
  - Oedema peripheral [Recovering/Resolving]
  - Cough [Recovering/Resolving]
  - Drug hypersensitivity [Unknown]
  - Oropharyngeal discomfort [Unknown]
  - Ejection fraction decreased [Unknown]
  - Blood bilirubin increased [Unknown]
  - Dehydration [Unknown]
  - Discharge [Unknown]
  - Pain [Unknown]
  - Muscle spasms [Unknown]
  - Panic reaction [Unknown]
  - Hyperhidrosis [Unknown]
  - Limb discomfort [Unknown]
  - Decreased appetite [Unknown]
  - Movement disorder [Unknown]
